FAERS Safety Report 16322622 (Version 2)
Quarter: 2019Q2

REPORT INFORMATION
  Report Type: Report from Study
  Country: US (occurrence: US)
  Receive Date: 20190516
  Receipt Date: 20190606
  Transmission Date: 20190711
  Serious: Yes (Hospitalization, Other)
  Sender: FDA-Public Use
  Company Number: US-SEATTLE GENETICS-2019SGN01319

PATIENT
  Age: 20 Year
  Sex: Female
  Weight: 84.8 kg

DRUGS (12)
  1. BRENTUXIMAB VEDOTIN [Suspect]
     Active Substance: BRENTUXIMAB VEDOTIN
     Indication: HODGKIN^S DISEASE
     Dosage: 105 MG, UNK
     Route: 042
     Dates: start: 20190403
  2. DOXORUBICIN [Suspect]
     Active Substance: DOXORUBICIN
     Indication: HODGKIN^S DISEASE
     Dosage: 51 MG, UNK
     Route: 042
     Dates: start: 20190403
  3. NORETHINDRONE                      /00044901/ [Concomitant]
     Active Substance: NORETHINDRONE
  4. ONDANSETRON [Concomitant]
     Active Substance: ONDANSETRON
     Indication: VOMITING
  5. NAPROXEN. [Concomitant]
     Active Substance: NAPROXEN
     Dosage: 1 TAB, BID PRN
  6. VINBLASTINE [Suspect]
     Active Substance: VINBLASTINE
     Indication: HODGKIN^S DISEASE
     Dosage: 12 MG, UNK
     Route: 042
     Dates: start: 20190403
  7. DACARBAZINE. [Suspect]
     Active Substance: DACARBAZINE
     Indication: HODGKIN^S DISEASE
     Dosage: 760 MG, UNK
     Route: 042
     Dates: start: 20190403
  8. PROMETHAZINE [Concomitant]
     Active Substance: PROMETHAZINE\PROMETHAZINE HYDROCHLORIDE
     Indication: VOMITING
     Dosage: 2 TAB, Q8HR
  9. LUPRON DEPOT [Concomitant]
     Active Substance: LEUPROLIDE ACETATE
  10. ONDANSETRON [Concomitant]
     Active Substance: ONDANSETRON
     Indication: NAUSEA
     Dosage: 1 TAB, Q8HR
  11. LIDOCAINE PRILOCAINE BIOGARAN [Concomitant]
  12. SODIUM BICARBONATE W/SODIUM CHLORIDE [Concomitant]
     Active Substance: SODIUM BICARBONATE\SODIUM CHLORIDE
     Dosage: 10 ML, QID

REACTIONS (3)
  - Neutropenia [Recovered/Resolved]
  - Hypercalcaemia [Recovered/Resolved]
  - Transaminases increased [Recovered/Resolved]

NARRATIVE: CASE EVENT DATE: 20190425
